FAERS Safety Report 8956547 (Version 2)
Quarter: 2013Q1

REPORT INFORMATION
  Report Type: Spontaneous
  Country: IT (occurrence: IT)
  Receive Date: 20121210
  Receipt Date: 20130108
  Transmission Date: 20140127
  Serious: Yes (Life-Threatening)
  Sender: FDA-Public Use
  Company Number: IT-SANOFI-AVENTIS-2012SA089430

PATIENT
  Age: 68 Year
  Sex: Male

DRUGS (5)
  1. TAXOTERE [Suspect]
     Indication: KERATINISING SQUAMOUS CELL CARCINOMA OF NASOPHARYNX
     Route: 042
     Dates: start: 20121105, end: 20121105
  2. PANTORC [Concomitant]
     Dosage: VIAL
     Route: 042
  3. ALOXI [Concomitant]
     Route: 042
  4. PLASIL [Concomitant]
     Route: 042
  5. DEXAMETHASONE PHOSPHATE [Concomitant]
     Route: 042

REACTIONS (3)
  - Cyanosis [Recovered/Resolved]
  - Feeling hot [Recovered/Resolved]
  - Dyspnoea [Recovered/Resolved]
